FAERS Safety Report 9335687 (Version 3)
Quarter: 2013Q4

REPORT INFORMATION
  Report Type: Spontaneous
  Country: US (occurrence: US)
  Receive Date: 20130605
  Receipt Date: 20131010
  Transmission Date: 20140711
  Serious: Yes (Hospitalization, Other)
  Sender: FDA-Public Use
  Company Number: US-009507513-1201USA00769

PATIENT
  Sex: Female
  Weight: 49.89 kg

DRUGS (4)
  1. FOSAMAX [Suspect]
     Indication: OSTEOPOROSIS POSTMENOPAUSAL
     Dosage: 10 MG, QD
     Route: 048
     Dates: end: 20091009
  2. FOSAMAX [Suspect]
     Dosage: 70 MG, UNK
     Route: 048
     Dates: start: 20000403, end: 20091009
  3. ALENDRONATE SODIUM [Suspect]
     Dosage: 70 MG, UNK
  4. FOSAMAX PLUS D [Suspect]
     Indication: OSTEOPOROSIS POSTMENOPAUSAL
     Dosage: 70 MG, UNK
     Route: 048
     Dates: end: 20091009

REACTIONS (43)
  - Femur fracture [Unknown]
  - Femur fracture [Unknown]
  - Medical device removal [Unknown]
  - Intramedullary rod insertion [Unknown]
  - Intramedullary rod insertion [Unknown]
  - Bone graft [Unknown]
  - Intramedullary rod insertion [Unknown]
  - Medical device removal [Unknown]
  - Open reduction of fracture [Unknown]
  - Fracture delayed union [Unknown]
  - Knee arthroplasty [Unknown]
  - Partial lung resection [Unknown]
  - Renal failure acute [Recovered/Resolved]
  - Knee arthroplasty [Unknown]
  - Lung adenocarcinoma stage I [Unknown]
  - Thoracotomy [Unknown]
  - Femur fracture [Unknown]
  - Musculoskeletal chest pain [Unknown]
  - Device breakage [Unknown]
  - Denture wearer [Unknown]
  - Peptic ulcer [Unknown]
  - Open angle glaucoma [Not Recovered/Not Resolved]
  - Hypertension [Unknown]
  - Atrial fibrillation [Unknown]
  - Uterine dilation and curettage [Unknown]
  - Cataract operation [Unknown]
  - Arthritis [Unknown]
  - Bone disorder [Unknown]
  - Dyspnoea [Unknown]
  - Rib fracture [Unknown]
  - Impaired healing [Unknown]
  - Fall [Unknown]
  - Renal cyst [Unknown]
  - Left ventricular hypertrophy [Unknown]
  - Diastolic dysfunction [Not Recovered/Not Resolved]
  - Mitral valve incompetence [Unknown]
  - Post procedural haemorrhage [Unknown]
  - Postmenopausal haemorrhage [Unknown]
  - Haemorrhagic anaemia [Unknown]
  - Hypercholesterolaemia [Unknown]
  - Anaemia [Unknown]
  - Osteopenia [Unknown]
  - Nausea [Unknown]
